FAERS Safety Report 8413843-4 (Version None)
Quarter: 2012Q2

REPORT INFORMATION
  Report Type: 
  Country: None (occurrence: None)
  Receive Date: 20120605
  Receipt Date: 20120522
  Transmission Date: 20120825
  Serious: Yes (Other)
  Sender: FDA-Public Use
  Company Number: US-SHIRE-ALL1-2012-02669

PATIENT
  Age: 14 Year
  Sex: Male

DRUGS (4)
  1. VYVANSE [Suspect]
     Dosage: UNK UNK, UNKNOWN
     Route: 048
     Dates: start: 20080101, end: 20110101
  2. VYVANSE [Suspect]
     Dosage: UNK UNK, 1X/DAY:QD
     Route: 048
     Dates: start: 20120501
  3. CLONIDINE [Concomitant]
     Indication: PRODUCT USED FOR UNKNOWN INDICATION
     Dosage: UNK UNK, 1X/DAY:QD (AT BEDTIME)
     Route: 048
  4. VYVANSE [Suspect]
     Indication: ATTENTION DEFICIT/HYPERACTIVITY DISORDER
     Dosage: 70 MG, 1X/DAY:QD
     Route: 048
     Dates: start: 20110101, end: 20120501

REACTIONS (1)
  - SUICIDAL IDEATION [None]
